FAERS Safety Report 25071559 (Version 1)
Quarter: 2025Q1

REPORT INFORMATION
  Report Type: Spontaneous
  Country: US (occurrence: US)
  Receive Date: 20250312
  Receipt Date: 20250312
  Transmission Date: 20250409
  Serious: Yes (Other)
  Sender: TEVA
  Company Number: US-TEVA-VS-3199782

PATIENT
  Age: 26 Year
  Sex: Female
  Weight: 101 kg

DRUGS (6)
  1. NORTRIPTYLINE [Suspect]
     Active Substance: NORTRIPTYLINE
     Indication: Migraine prophylaxis
     Dosage: 10 MG QD
     Route: 048
     Dates: start: 20240219
  2. METOPROLOL [Concomitant]
     Active Substance: METOPROLOL
     Indication: Hypotension
     Route: 048
     Dates: start: 2021
  3. VITAMIN D [Concomitant]
     Active Substance: VITAMIN D NOS
     Indication: Hypovitaminosis
     Route: 048
     Dates: start: 2023
  4. VITAMIN B12 [Concomitant]
     Active Substance: CYANOCOBALAMIN
     Indication: Vitamin B12 deficiency
     Route: 058
     Dates: start: 20230424
  5. FLECAINIDE [Concomitant]
     Active Substance: FLECAINIDE
     Indication: Supraventricular tachycardia
     Route: 048
     Dates: start: 2022, end: 202403
  6. KEPPRA [Concomitant]
     Active Substance: LEVETIRACETAM
     Indication: Epilepsy
     Route: 048
     Dates: start: 202306

REACTIONS (3)
  - Caesarean section [Unknown]
  - Maternal exposure during pregnancy [Unknown]
  - Live birth [Unknown]

NARRATIVE: CASE EVENT DATE: 20240219
